FAERS Safety Report 7549816-3 (Version None)
Quarter: 2011Q2

REPORT INFORMATION
  Report Type: 
  Country: None (occurrence: None)
  Receive Date: 20110615
  Receipt Date: 20110608
  Transmission Date: 20111010
  Serious: Yes (Life-Threatening, Other)
  Sender: FDA-Public Use
  Company Number: US-MERCK-1106USA01032

PATIENT
  Age: 63 Year
  Sex: Female

DRUGS (2)
  1. JANUMET [Suspect]
     Indication: DIABETES MELLITUS
     Route: 048
  2. JANUMET [Suspect]
     Route: 048
     Dates: start: 20110512

REACTIONS (5)
  - HYPERHIDROSIS [None]
  - DIZZINESS [None]
  - HEART RATE INCREASED [None]
  - HOT FLUSH [None]
  - INCORRECT DOSE ADMINISTERED [None]
